FAERS Safety Report 4853545-4 (Version None)
Quarter: 2005Q4

REPORT INFORMATION
  Report Type: 
  Country: None (occurrence: None)
  Receive Date: 20051214
  Receipt Date: 20051206
  Transmission Date: 20060501
  Serious: Yes (Other)
  Sender: FDA-Public Use
  Company Number: JP-JNJFOC-20051106285

PATIENT
  Age: 44 Year
  Sex: Female

DRUGS (3)
  1. RISPERDAL [Suspect]
     Indication: SCHIZOPHRENIA
     Route: 048
  2. MOSAPRIDE CITRATE [Concomitant]
     Route: 048
  3. ETIZOLAM [Concomitant]
     Route: 048

REACTIONS (3)
  - ANAEMIA [None]
  - IRON DEFICIENCY ANAEMIA [None]
  - METRORRHAGIA [None]
